FAERS Safety Report 13121977 (Version 1)
Quarter: 2017Q1

REPORT INFORMATION
  Report Type: Spontaneous
  Country: US (occurrence: US)
  Receive Date: 20170117
  Receipt Date: 20170117
  Transmission Date: 20170428
  Serious: No
  Sender: FDA-Public Use
  Company Number: US-MYLANLABS-2016M1044038

PATIENT
  Sex: Female
  Weight: 77.98 kg

DRUGS (2)
  1. ESTRADIOL TRANSDERMAL SYSTEM [Suspect]
     Active Substance: ESTRADIOL
     Indication: MENOPAUSE
     Dosage: 0.05 MG, QD, CHANGE TW
     Route: 062
     Dates: start: 20160929
  2. PROGESTERONE. [Concomitant]
     Active Substance: PROGESTERONE
     Indication: PRODUCT USED FOR UNKNOWN INDICATION
     Dosage: UNK

REACTIONS (2)
  - Metrorrhagia [Unknown]
  - Drug effect increased [Unknown]

NARRATIVE: CASE EVENT DATE: 2016
